FAERS Safety Report 15778419 (Version 2)
Quarter: 2019Q2

REPORT INFORMATION
  Report Type: Spontaneous
  Country: US (occurrence: US)
  Receive Date: 20181231
  Receipt Date: 20190402
  Transmission Date: 20190711
  Serious: No
  Sender: FDA-Public Use
  Company Number: PHEH2018US055304

PATIENT
  Sex: Male

DRUGS (3)
  1. VOTRIENT [Suspect]
     Active Substance: PAZOPANIB HYDROCHLORIDE
     Indication: MALIGNANT CONNECTIVE TISSUE NEOPLASM
     Dosage: 2 DF, QD (TAKE 2 TABS BY MOUTH FOR 7 DAYS , THEN INREASED TO 3 TABS DAILY, TAKE EMPTY STOMACH 1 HR )
     Route: 048
     Dates: start: 20181212
  2. LOSARTAN POTASSIUM. [Concomitant]
     Active Substance: LOSARTAN POTASSIUM
     Indication: PRODUCT USED FOR UNKNOWN INDICATION
     Dosage: UNK
     Route: 065
  3. VOTRIENT [Suspect]
     Active Substance: PAZOPANIB HYDROCHLORIDE
     Indication: SOFT TISSUE SARCOMA

REACTIONS (4)
  - Skin discolouration [Unknown]
  - Diarrhoea [Unknown]
  - Heart rate decreased [Unknown]
  - Fatigue [Not Recovered/Not Resolved]
